FAERS Safety Report 6642274-2 (Version None)
Quarter: 2010Q1

REPORT INFORMATION
  Report Type: 
  Country: None (occurrence: None)
  Receive Date: 20100319
  Receipt Date: 20100308
  Transmission Date: 20100710
  Serious: Yes (Other)
  Sender: FDA-Public Use
  Company Number: US-JNJFOC-20100302520

PATIENT
  Sex: Male
  Weight: 83.92 kg

DRUGS (7)
  1. REMICADE [Suspect]
     Indication: COLITIS ULCERATIVE
     Route: 042
     Dates: start: 20091001, end: 20100118
  2. REMICADE [Suspect]
     Route: 042
     Dates: start: 20091001, end: 20100118
  3. METFORMIN HCL [Concomitant]
     Indication: DIABETES MELLITUS
  4. LIALDA [Concomitant]
     Indication: COLITIS ULCERATIVE
  5. PREDNISONE [Concomitant]
     Indication: COLITIS ULCERATIVE
  6. GABAPENTIN [Concomitant]
     Indication: NEUROPATHY PERIPHERAL
  7. SLEEPING PILL NOS [Concomitant]

REACTIONS (7)
  - ABDOMINAL DISCOMFORT [None]
  - DIZZINESS [None]
  - MUSCULAR WEAKNESS [None]
  - NAUSEA [None]
  - PARAESTHESIA [None]
  - RASH [None]
  - SWOLLEN TONGUE [None]
